FAERS Safety Report 12425142 (Version 1)
Quarter: 2016Q2

REPORT INFORMATION
  Report Type: Spontaneous
  Country: JP (occurrence: JP)
  Receive Date: 20160601
  Receipt Date: 20160601
  Transmission Date: 20160815
  Serious: Yes (Death, Other)
  Sender: FDA-Public Use
  Company Number: JP-BAYER-2016-101492

PATIENT
  Age: 58 Year
  Sex: Male

DRUGS (2)
  1. BAYASPIRIN [Suspect]
     Active Substance: ASPIRIN
     Dosage: UNK
     Route: 048
     Dates: start: 20151120, end: 20160405
  2. BAYASPIRIN [Suspect]
     Active Substance: ASPIRIN
     Dosage: UNK
     Route: 048
     Dates: start: 20160428, end: 20160430

REACTIONS (5)
  - Melaena [Not Recovered/Not Resolved]
  - Diarrhoea [None]
  - Myocardial infarction [Fatal]
  - Colitis ulcerative [None]
  - Haematochezia [None]

NARRATIVE: CASE EVENT DATE: 201602
